FAERS Safety Report 19955816 (Version 2)
Quarter: 2021Q4

REPORT INFORMATION
  Report Type: Spontaneous
  Country: JP (occurrence: None)
  Receive Date: 20211014
  Receipt Date: 20211101
  Transmission Date: 20220303
  Serious: Yes (Hospitalization)
  Sender: FDA-Public Use
  Company Number: 2021A765456

PATIENT
  Age: 28 Year
  Sex: Male

DRUGS (9)
  1. DAPAGLIFLOZIN [Suspect]
     Active Substance: DAPAGLIFLOZIN
     Indication: Diabetes mellitus
     Dosage: 5.0MG UNKNOWN
     Route: 048
  2. INSULIN DEGLUDEC(GENETICAL RECOMBINATION)/LIRAGLUTIDE(GENETICAL REC... [Concomitant]
     Indication: Diabetes mellitus
     Dosage: 0-0-10-0
     Route: 065
  3. INSULIN LISPRO(GENETICAL RECOMBINATION) [Concomitant]
     Indication: Diabetes mellitus
     Dosage: 10-10-10
     Route: 065
  4. INSULIN LISPRO(GENETICAL RECOMBINATION) [Concomitant]
     Indication: Diabetes mellitus
     Dosage: 8-6-6
     Route: 065
  5. INSULIN LISPRO(GENETICAL RECOMBINATION) [Concomitant]
     Indication: Diabetes mellitus
     Dosage: 4-3-3
     Route: 065
  6. METFORMIN HYDROCHLORIDE [Concomitant]
     Active Substance: METFORMIN HYDROCHLORIDE
     Indication: Diabetes mellitus
     Route: 065
  7. INSULIN LISPRO(GENETICAL RECOMBINATION) [Concomitant]
     Indication: Diabetes mellitus
     Dosage: 10-10-10
     Route: 065
  8. INSULIN LISPRO(GENETICAL RECOMBINATION) [Concomitant]
     Indication: Diabetes mellitus
     Dosage: 8-6-6
     Route: 065
  9. INSULIN LISPRO(GENETICAL RECOMBINATION) [Concomitant]
     Indication: Diabetes mellitus
     Dosage: 4-3-3
     Route: 065

REACTIONS (1)
  - Euglycaemic diabetic ketoacidosis [Recovering/Resolving]

NARRATIVE: CASE EVENT DATE: 20210427
